FAERS Safety Report 7767360-5 (Version None)
Quarter: 2011Q3

REPORT INFORMATION
  Report Type: 
  Country: None (occurrence: None)
  Receive Date: 20110922
  Receipt Date: 20100826
  Transmission Date: 20111222
  Serious: No
  Sender: FDA-Public Use
  Company Number: US-ASTRAZENECA-2007UW21532

PATIENT
  Age: 11146 Day
  Sex: Female
  Weight: 95.3 kg

DRUGS (17)
  1. SEROQUEL [Suspect]
     Indication: DEPRESSION
     Dosage: 200, 300, 700 MG
     Route: 048
     Dates: start: 20050301
  2. SEROQUEL [Suspect]
     Dosage: 200 TO 500 MG
     Route: 048
     Dates: start: 20050513
  3. ZOLOFT [Concomitant]
     Dates: start: 20050513
  4. METHYLPREDNISOLONE [Concomitant]
     Dates: start: 20050610
  5. EFFEXOR [Concomitant]
     Dosage: 75
     Dates: start: 20060524
  6. SEROQUEL [Suspect]
     Indication: ANXIETY
     Dosage: 200, 300, 700 MG
     Route: 048
     Dates: start: 20050301
  7. SEROQUEL [Suspect]
     Dosage: 200 TO 500 MG
     Route: 048
     Dates: start: 20050513
  8. TRIAMTERENE AND HYDROCHLOROTHIAZIDE [Concomitant]
     Dosage: 37.5/25
     Dates: start: 20050610
  9. SEROQUEL [Suspect]
     Dosage: 200 TO 500 MG
     Route: 048
     Dates: start: 20050513
  10. HYDROCODONE BITARTRATE AND ACETAMINOPHEN [Concomitant]
     Dosage: 5/500
     Dates: start: 20031020
  11. ADVAIR DISKUS 100/50 [Concomitant]
     Dosage: 250/50
     Dates: start: 20050610
  12. TOPROL-XL [Concomitant]
     Dates: start: 20060524
  13. SEROQUEL [Suspect]
     Indication: BIPOLAR DISORDER
     Dosage: 200, 300, 700 MG
     Route: 048
     Dates: start: 20050301
  14. RANITIDINE [Concomitant]
     Dates: start: 20050610
  15. LORATADINE [Concomitant]
     Dates: start: 20050610
  16. SULFAMETHOXAZOLE AND TRIMETHOPRIM [Concomitant]
     Dates: start: 20050610
  17. NEURONTIN [Concomitant]
     Dates: start: 20060524

REACTIONS (4)
  - SPINAL CORD DISORDER [None]
  - BACK INJURY [None]
  - TYPE 2 DIABETES MELLITUS [None]
  - OBESITY [None]
